FAERS Safety Report 24773791 (Version 12)
Quarter: 2025Q1

REPORT INFORMATION
  Report Type: Spontaneous
  Country: CA (occurrence: CA)
  Receive Date: 20241225
  Receipt Date: 20250327
  Transmission Date: 20250409
  Serious: Yes (Hospitalization, Other)
  Sender: ASTELLAS
  Company Number: CA-PFIZER INC-PV202400143826

PATIENT
  Age: 67 Year
  Sex: Male

DRUGS (18)
  1. PADCEV [Suspect]
     Active Substance: ENFORTUMAB VEDOTIN-EJFV
     Indication: Transitional cell carcinoma metastatic
     Route: 042
     Dates: start: 20241104
  2. PADCEV [Suspect]
     Active Substance: ENFORTUMAB VEDOTIN-EJFV
     Route: 042
     Dates: start: 20241111
  3. PADCEV [Suspect]
     Active Substance: ENFORTUMAB VEDOTIN-EJFV
     Route: 042
     Dates: start: 20241125
  4. PADCEV [Suspect]
     Active Substance: ENFORTUMAB VEDOTIN-EJFV
     Route: 042
     Dates: start: 20241202
  5. PADCEV [Suspect]
     Active Substance: ENFORTUMAB VEDOTIN-EJFV
     Route: 042
     Dates: start: 20241216
  6. PADCEV [Suspect]
     Active Substance: ENFORTUMAB VEDOTIN-EJFV
     Route: 042
     Dates: start: 20241223
  7. PADCEV [Suspect]
     Active Substance: ENFORTUMAB VEDOTIN-EJFV
     Route: 042
     Dates: start: 20250106
  8. PADCEV [Suspect]
     Active Substance: ENFORTUMAB VEDOTIN-EJFV
     Route: 042
     Dates: start: 20250113
  9. PADCEV [Suspect]
     Active Substance: ENFORTUMAB VEDOTIN-EJFV
     Route: 042
     Dates: start: 20250127
  10. PADCEV [Suspect]
     Active Substance: ENFORTUMAB VEDOTIN-EJFV
     Route: 042
     Dates: start: 20250203
  11. PADCEV [Suspect]
     Active Substance: ENFORTUMAB VEDOTIN-EJFV
     Route: 042
     Dates: start: 20250211
  12. PADCEV [Suspect]
     Active Substance: ENFORTUMAB VEDOTIN-EJFV
     Route: 042
     Dates: start: 20250226
  13. PADCEV [Suspect]
     Active Substance: ENFORTUMAB VEDOTIN-EJFV
     Route: 042
     Dates: start: 20250219
  14. PADCEV [Suspect]
     Active Substance: ENFORTUMAB VEDOTIN-EJFV
     Route: 042
     Dates: start: 20250310
  15. PADCEV [Suspect]
     Active Substance: ENFORTUMAB VEDOTIN-EJFV
     Route: 042
     Dates: start: 20250317
  16. KEYTRUDA [Concomitant]
     Active Substance: PEMBROLIZUMAB
     Indication: Transitional cell carcinoma metastatic
     Route: 065
  17. METOPROLOL [Concomitant]
     Active Substance: METOPROLOL
     Indication: Anticoagulant therapy
     Route: 065
  18. APIXABAN [Concomitant]
     Active Substance: APIXABAN
     Indication: Deep vein thrombosis
     Dosage: 5 MG, 2X/DAY
     Route: 065

REACTIONS (37)
  - Urinary tract infection [Not Recovered/Not Resolved]
  - Bacteraemia [Recovered/Resolved]
  - Renal disorder [Unknown]
  - Somnolence [Unknown]
  - Hyperhidrosis [Unknown]
  - Chills [Unknown]
  - Dizziness [Recovering/Resolving]
  - Headache [Unknown]
  - Haematuria [Unknown]
  - Constipation [Not Recovered/Not Resolved]
  - Rash [Unknown]
  - Alopecia [Not Recovered/Not Resolved]
  - Pyrexia [Unknown]
  - Feeling abnormal [Unknown]
  - Hypertension [Recovered/Resolved]
  - Hypoaesthesia [Not Recovered/Not Resolved]
  - Pallor [Not Recovered/Not Resolved]
  - Rash erythematous [Recovered/Resolved]
  - Rash pruritic [Unknown]
  - Weight increased [Unknown]
  - Eye swelling [Unknown]
  - Vision blurred [Recovered/Resolved]
  - Eyelid cyst [Recovered/Resolved]
  - Muscle strain [Unknown]
  - Conjunctivitis [Unknown]
  - Blood pressure increased [Recovering/Resolving]
  - Dysuria [Unknown]
  - Fatigue [Unknown]
  - Skin exfoliation [Recovered/Resolved]
  - Asthenia [Not Recovered/Not Resolved]
  - Ocular hyperaemia [Recovering/Resolving]
  - Dry eye [Recovered/Resolved]
  - Vision blurred [Not Recovered/Not Resolved]
  - Eye pruritus [Not Recovered/Not Resolved]
  - Dry eye [Not Recovered/Not Resolved]
  - Nasopharyngitis [Recovered/Resolved]
  - Capillary nail refill test abnormal [Not Recovered/Not Resolved]

NARRATIVE: CASE EVENT DATE: 20240101
